FAERS Safety Report 18348313 (Version 1)
Quarter: 2020Q4

REPORT INFORMATION
  Report Type: Spontaneous
  Country: US (occurrence: US)
  Receive Date: 20201005
  Receipt Date: 20201005
  Transmission Date: 20210114
  Serious: Yes (Hospitalization)
  Sender: FDA-Public Use
  Company Number: None

PATIENT
  Age: 59 Year
  Sex: Female

DRUGS (37)
  1. SUMATRIPTAN. [Concomitant]
     Active Substance: SUMATRIPTAN
  2. SYMBICORT [Concomitant]
     Active Substance: BUDESONIDE\FORMOTEROL FUMARATE DIHYDRATE
  3. BETHAMETH [Concomitant]
  4. LOVENOX [Concomitant]
     Active Substance: ENOXAPARIN SODIUM
  5. SYNTHROID [Concomitant]
     Active Substance: LEVOTHYROXINE SODIUM
  6. FUROSEMIDE. [Concomitant]
     Active Substance: FUROSEMIDE
  7. HYDROXYCHLOR [Concomitant]
     Active Substance: HYDROXYCHLOROQUINE
  8. ORENCIA [Suspect]
     Active Substance: ABATACEPT
     Indication: RHEUMATOID ARTHRITIS
     Route: 058
     Dates: start: 20191008
  9. PHENTERMINE. [Concomitant]
     Active Substance: PHENTERMINE
  10. PHENTERMINE. [Concomitant]
     Active Substance: PHENTERMINE
  11. LEVOTHYROXIN [Concomitant]
     Active Substance: LEVOTHYROXINE
  12. CLOBETRSOL [Concomitant]
  13. DEXTROAMPHET SACCHARAT, AMPHET ASPARTATE, DEXTROAMPHET SULFATE AND AMPHET SULFAT [Concomitant]
     Active Substance: AMPHETAMINE ASPARTATE\AMPHETAMINE SULFATE\DEXTROAMPHETAMINE SACCHARATE\DEXTROAMPHETAMINE SULFATE
  14. METHOTEXATE [Concomitant]
     Active Substance: METHOTREXATE
  15. ARLINITYELPH INH [Concomitant]
  16. TRAMADOL. [Concomitant]
     Active Substance: TRAMADOL
  17. GABAPENTIN. [Concomitant]
     Active Substance: GABAPENTIN
  18. LORAZEPAM. [Concomitant]
     Active Substance: LORAZEPAM
  19. NIFEDIPINE. [Concomitant]
     Active Substance: NIFEDIPINE
  20. VITAMIN D3 [Concomitant]
     Active Substance: CHOLECALCIFEROL
  21. AZELASTINE. [Concomitant]
     Active Substance: AZELASTINE HYDROCHLORIDE
  22. TRULANE [Concomitant]
  23. BUPROPN HCL [Concomitant]
     Active Substance: BUPROPION HYDROCHLORIDE
  24. OXYCODONE AND ACETAMINOPHEN [Concomitant]
     Active Substance: ACETAMINOPHEN\OXYCODONE HYDROCHLORIDE
  25. HYDROCOL/APAP [Concomitant]
  26. AMBIEN [Concomitant]
     Active Substance: ZOLPIDEM TARTRATE
  27. MIRTAZAPINE. [Concomitant]
     Active Substance: MIRTAZAPINE
  28. BUDEPRION XL [Concomitant]
     Active Substance: BUPROPION HYDROCHLORIDE
  29. DEXAMETHASON [Concomitant]
     Active Substance: DEXAMETHASONE
  30. CEFDINIR. [Concomitant]
     Active Substance: CEFDINIR
  31. LEVOCETIRIZ [Concomitant]
  32. IPRATROPILIM [Concomitant]
  33. CYANCOCOBALAM [Concomitant]
  34. TAMIFLU [Concomitant]
     Active Substance: OSELTAMIVIR PHOSPHATE
  35. ONDANSETROM [Concomitant]
     Active Substance: ONDANSETRON
  36. VENTOLIN HFA AER [Concomitant]
  37. TOPIRAMATE. [Concomitant]
     Active Substance: TOPIRAMATE

REACTIONS (2)
  - Inflammation [None]
  - Haemorrhage [None]

NARRATIVE: CASE EVENT DATE: 202002
